FAERS Safety Report 8889239 (Version 3)
Quarter: 2013Q1

REPORT INFORMATION
  Report Type: Report from Study
  Country: BE (occurrence: BE)
  Receive Date: 20121106
  Receipt Date: 20130307
  Transmission Date: 20140127
  Serious: Yes (Death, Life-Threatening, Hospitalization)
  Sender: FDA-Public Use
  Company Number: BE-GLAXOSMITHKLINE-Z0017450B

PATIENT
  Age: 61 Year
  Sex: Male
  Weight: 83 kg

DRUGS (4)
  1. OFATUMUMAB [Suspect]
     Indication: DIFFUSE LARGE B-CELL LYMPHOMA RECURRENT
     Dosage: 1000MG CYCLIC
     Route: 042
     Dates: start: 20121010, end: 20121016
  2. DEXAMETHASONE [Suspect]
     Indication: DIFFUSE LARGE B-CELL LYMPHOMA RECURRENT
     Dosage: 40MG EVERY 3 WEEKS
     Dates: start: 20121010, end: 20121015
  3. CISPLATIN [Suspect]
     Indication: DIFFUSE LARGE B-CELL LYMPHOMA RECURRENT
     Dosage: 100MGM2 EVERY 3 WEEKS
     Route: 042
     Dates: start: 20121010, end: 20121011
  4. CYTARABINE [Suspect]
     Indication: DIFFUSE LARGE B-CELL LYMPHOMA RECURRENT
     Dosage: 4GM2 EVERY 3 WEEKS
     Route: 042
     Dates: start: 20121015, end: 20121016

REACTIONS (1)
  - Lymphoma [Fatal]
